FAERS Safety Report 9921996 (Version 1)
Quarter: 2014Q1

REPORT INFORMATION
  Report Type: Spontaneous
  Country: US (occurrence: None)
  Receive Date: 20140221
  Receipt Date: 20140221
  Transmission Date: 20141002
  Serious: Yes (Other)
  Sender: FDA-Public Use
  Company Number: None

PATIENT
  Age: 55 Year
  Sex: Female
  Weight: 65.77 kg

DRUGS (3)
  1. FLUPHENAZINE-DECANOATE [Suspect]
     Indication: DEPRESSION
     Dates: start: 2011
  2. GEODON [Concomitant]
  3. PENICILLAN [Concomitant]

REACTIONS (3)
  - Furuncle [None]
  - Skin discolouration [None]
  - Unevaluable event [None]
